FAERS Safety Report 13433589 (Version 2)
Quarter: 2021Q1

REPORT INFORMATION
  Report Type: Spontaneous
  Country: US (occurrence: US)
  Receive Date: 20170412
  Receipt Date: 20210106
  Transmission Date: 20210419
  Serious: No
  Sender: FDA-Public Use
  Company Number: US-ASTRAZENECA-2017SE35607

PATIENT
  Age: 22404 Day
  Sex: Male

DRUGS (9)
  1. METOPROLOL TARTRATE. [Suspect]
     Active Substance: METOPROLOL TARTRATE
     Indication: BLOOD PRESSURE ABNORMAL
     Route: 048
  2. CRESTOR [Suspect]
     Active Substance: ROSUVASTATIN CALCIUM
     Indication: BLOOD CHOLESTEROL ABNORMAL
     Route: 048
     Dates: start: 20170317
  3. VITAMIN D [Concomitant]
     Active Substance: VITAMIN D NOS
     Indication: VITAMIN D DEFICIENCY
     Dosage: 2000, TWO TIMES A DAY
     Route: 048
  4. BRILINTA [Suspect]
     Active Substance: TICAGRELOR
     Indication: STENT PLACEMENT
     Route: 048
     Dates: start: 201703, end: 20170403
  5. ERYTHROMYCIN. [Concomitant]
     Active Substance: ERYTHROMYCIN
     Indication: CONJUNCTIVITIS VIRAL
     Dosage: 5MG/GM, UNKNOWN
     Route: 047
  6. TORIDOL [Concomitant]
     Dosage: 60.0MG ONCE/SINGLE ADMINISTRATION
     Route: 030
  7. CLOPIDOGREL [Concomitant]
     Active Substance: CLOPIDOGREL BISULFATE
  8. LEVOTHYROXINE SODIUM. [Concomitant]
     Active Substance: LEVOTHYROXINE SODIUM
     Indication: THYROID DISORDER
     Route: 048
  9. MACLIZINE HYDROCHLOROTHYAZIDE [Concomitant]
     Indication: VERTIGO
     Route: 048

REACTIONS (12)
  - Diabetic retinopathy [Unknown]
  - Prostatic specific antigen increased [Unknown]
  - Coronary artery disease [Unknown]
  - Hypertension [Unknown]
  - Cataract [Unknown]
  - Hypothyroidism [Unknown]
  - Haematuria [Unknown]
  - Osteoarthritis [Unknown]
  - Nephrolithiasis [Unknown]
  - Vitamin D deficiency [Unknown]
  - Acquired mixed hyperlipidaemia [Unknown]
  - Vertigo positional [Unknown]

NARRATIVE: CASE EVENT DATE: 20170329
